FAERS Safety Report 10642158 (Version 1)
Quarter: 2014Q4

REPORT INFORMATION
  Report Type: Spontaneous
  Country: TW (occurrence: TW)
  Receive Date: 20141210
  Receipt Date: 20141210
  Transmission Date: 20150529
  Serious: Yes (Other)
  Sender: FDA-Public Use
  Company Number: TW-ROCHE-1505007

PATIENT
  Age: 41 Year
  Sex: Female

DRUGS (5)
  1. PREDNISOLONE. [Concomitant]
     Active Substance: PREDNISOLONE
     Route: 065
     Dates: start: 20120917
  2. RAPAMUNE [Concomitant]
     Active Substance: SIROLIMUS
  3. PREDNISOLONE. [Concomitant]
     Active Substance: PREDNISOLONE
     Indication: PROPHYLAXIS AGAINST TRANSPLANT REJECTION
     Route: 065
  4. CELLCEPT [Suspect]
     Active Substance: MYCOPHENOLATE MOFETIL\MYCOPHENOLATE MOFETIL HYDROCHLORIDE
     Indication: PROPHYLAXIS AGAINST TRANSPLANT REJECTION
     Route: 065
  5. PREDNISOLONE. [Concomitant]
     Active Substance: PREDNISOLONE
     Route: 065
     Dates: start: 20130218

REACTIONS (1)
  - Lupus nephritis [Unknown]

NARRATIVE: CASE EVENT DATE: 20120916
